FAERS Safety Report 6169584-X (Version None)
Quarter: 2009Q2

REPORT INFORMATION
  Report Type: 
  Country: None (occurrence: None)
  Receive Date: 20090428
  Receipt Date: 20090417
  Transmission Date: 20091009
  Serious: Yes (Death, Other)
  Sender: FDA-Public Use
  Company Number: ES-CELGENEUS-144-20785-09042039

PATIENT

DRUGS (4)
  1. THALIDOMIDE [Suspect]
     Indication: MULTIPLE MYELOMA
     Route: 048
     Dates: start: 20060401
  2. BORTEZOMIB [Suspect]
     Indication: MULTIPLE MYELOMA
     Route: 051
     Dates: start: 20060401
  3. BORTEZOMIB [Suspect]
     Route: 051
  4. PREDNISONE TAB [Suspect]
     Indication: MULTIPLE MYELOMA
     Route: 065
     Dates: start: 20060401

REACTIONS (8)
  - CARDIAC DISORDER [None]
  - DEATH [None]
  - DISEASE PROGRESSION [None]
  - EMBOLISM [None]
  - INFECTION [None]
  - NEUROPATHY PERIPHERAL [None]
  - NEUTROPENIA [None]
  - THROMBOCYTOPENIA [None]
